FAERS Safety Report 22288644 (Version 2)
Quarter: 2023Q2

REPORT INFORMATION
  Report Type: Report from Study
  Country: CA (occurrence: CA)
  Receive Date: 20230505
  Receipt Date: 20230619
  Transmission Date: 20230721
  Serious: Yes (Death)
  Sender: FDA-Public Use
  Company Number: CA-BAYER-2023A059190

PATIENT
  Age: 71 Year
  Sex: Female

DRUGS (1)
  1. ADEMPAS [Suspect]
     Active Substance: RIOCIGUAT
     Indication: Pulmonary hypertension
     Dosage: 2MG IN AM, 1.5MG IN AFTERNOON AND 2MG IN PM
     Dates: start: 20170921, end: 20230426

REACTIONS (2)
  - Death [Fatal]
  - Incorrect dose administered [None]

NARRATIVE: CASE EVENT DATE: 20230426
